FAERS Safety Report 25127689 (Version 1)
Quarter: 2025Q1

REPORT INFORMATION
  Report Type: Spontaneous
  Country: US (occurrence: US)
  Receive Date: 20250327
  Receipt Date: 20250327
  Transmission Date: 20250409
  Serious: Yes (Other)
  Sender: SANOFI AVENTIS
  Company Number: US-SA-2025SA085101

PATIENT
  Sex: Female

DRUGS (8)
  1. DUPIXENT [Suspect]
     Active Substance: DUPILUMAB
     Indication: Asthma
     Route: 058
     Dates: start: 20200901
  2. SUMATRIPTAN [Concomitant]
     Active Substance: SUMATRIPTAN
  3. VITAMINS NOS [Concomitant]
     Active Substance: VITAMINS
  4. TYLENOL [Concomitant]
     Active Substance: ACETAMINOPHEN
  5. IBUPROFEN [Concomitant]
     Active Substance: IBUPROFEN
  6. SINGULAIR [Concomitant]
     Active Substance: MONTELUKAST SODIUM
  7. LEVOTHYROXINE [Concomitant]
     Active Substance: LEVOTHYROXINE
  8. IPRATROPIUM [Concomitant]
     Active Substance: IPRATROPIUM

REACTIONS (10)
  - Dermatitis exfoliative [Unknown]
  - Fatigue [Unknown]
  - Toothache [Unknown]
  - Dizziness [Unknown]
  - Skin exfoliation [Unknown]
  - Insomnia [Unknown]
  - Erythema [Unknown]
  - Skin burning sensation [Unknown]
  - Dry eye [Unknown]
  - Rash [Unknown]
